FAERS Safety Report 5306309-1 (Version None)
Quarter: 2007Q2

REPORT INFORMATION
  Report Type: 
  Country: None (occurrence: None)
  Receive Date: 20070424
  Receipt Date: 20070417
  Transmission Date: 20071010
  Serious: Yes (Hospitalization)
  Sender: FDA-Public Use
  Company Number: US-ABBOTT-07P-163-0365401-00

PATIENT
  Age: 43 Year
  Sex: Male

DRUGS (10)
  1. RITONAVIR [Suspect]
     Indication: HIV INFECTION
     Route: 065
  2. ATAZANAVIR SULFATE [Suspect]
     Indication: HIV INFECTION
     Route: 065
  3. EMTRICITABINE/TENOFOVIR DISOPROXIL FUMARATE [Suspect]
     Indication: HIV INFECTION
     Route: 065
  4. ALBUTEROL/ATROVENT [Concomitant]
     Indication: DRUG USE FOR UNKNOWN INDICATION
  5. BECLOMETHASONE DIPROPIONATE [Concomitant]
     Indication: DRUG USE FOR UNKNOWN INDICATION
  6. ANTIHYPERTENSIVES [Concomitant]
     Indication: DRUG USE FOR UNKNOWN INDICATION
  7. VITAMIN [Concomitant]
     Indication: DRUG USE FOR UNKNOWN INDICATION
  8. RISEDRONATE SODIUM [Concomitant]
     Indication: DRUG USE FOR UNKNOWN INDICATION
  9. FLUOXETINE [Concomitant]
     Indication: DRUG USE FOR UNKNOWN INDICATION
  10. LEVOTHYROXINE SODIUM [Concomitant]
     Indication: DRUG USE FOR UNKNOWN INDICATION

REACTIONS (2)
  - IMMUNE RECONSTITUTION SYNDROME [None]
  - PULMONARY SARCOIDOSIS [None]
